FAERS Safety Report 23514471 (Version 2)
Quarter: 2024Q1

REPORT INFORMATION
  Report Type: Spontaneous
  Country: US (occurrence: US)
  Receive Date: 20240212
  Receipt Date: 20240219
  Transmission Date: 20240410
  Serious: No
  Sender: FDA-Public Use
  Company Number: US-PFIZER INC-202400037185

PATIENT
  Age: 48 Year
  Sex: Female
  Weight: 49.44 kg

DRUGS (1)
  1. ESTRING [Suspect]
     Active Substance: ESTRADIOL
     Indication: Menopause
     Dosage: 2 MG
     Route: 067

REACTIONS (1)
  - Fungal infection [Unknown]
